FAERS Safety Report 9207702 (Version 1)
Quarter: 2013Q1

REPORT INFORMATION
  Report Type: Spontaneous
  Country: US (occurrence: None)
  Receive Date: 20120809
  Receipt Date: 20120809
  Transmission Date: 20140127
  Serious: Yes (Hospitalization)
  Sender: FDA-Public Use
  Company Number: 2011US007416

PATIENT
  Age: 60 Year
  Sex: Female

DRUGS (2)
  1. VESICARE (SOLIFENACIN) TABLET [Suspect]
     Dosage: UID
     Route: 048
     Dates: start: 201108, end: 201108
  2. VALIUM (DIAZEPAM) [Concomitant]

REACTIONS (2)
  - Off label use [None]
  - Abdominal pain [None]
